FAERS Safety Report 8593881-1 (Version None)
Quarter: 2012Q3

REPORT INFORMATION
  Report Type: 
  Country: None (occurrence: None)
  Receive Date: 20120814
  Receipt Date: 20120813
  Transmission Date: 20120928
  Serious: Yes (Hospitalization)
  Sender: FDA-Public Use
  Company Number: US-PFIZER INC-2012197823

PATIENT
  Age: 69 Year
  Sex: Female
  Weight: 48.073 kg

DRUGS (2)
  1. CARDIZEM LA [Concomitant]
     Indication: HYPERTENSION
     Dosage: 240 MG, DAILY
     Route: 048
  2. LIPITOR [Suspect]
     Indication: BLOOD CHOLESTEROL INCREASED
     Dosage: 20 MG, DAILY
     Route: 048

REACTIONS (1)
  - LUNG NEOPLASM [None]
